FAERS Safety Report 5809858-2 (Version None)
Quarter: 2008Q3

REPORT INFORMATION
  Report Type: 
  Country: None (occurrence: None)
  Receive Date: 20080714
  Receipt Date: 20080714
  Transmission Date: 20090109
  Serious: Yes (Life-Threatening, Hospitalization, Disabling)
  Sender: FDA-Public Use
  Company Number: None

PATIENT
  Age: 63 Year
  Sex: Male
  Weight: 50.9843 kg

DRUGS (1)
  1. CETUXIMAB 100MG -2MG/ML- IMCLONE SYSTEMS INCORPORATED [Suspect]
     Dosage: 82MG 1 IV DRIP
     Route: 041
     Dates: start: 20080710

REACTIONS (3)
  - COUGH [None]
  - DYSPNOEA [None]
  - NAUSEA [None]
